FAERS Safety Report 15517745 (Version 3)
Quarter: 2019Q1

REPORT INFORMATION
  Report Type: Spontaneous
  Country: US (occurrence: US)
  Receive Date: 20181017
  Receipt Date: 20190116
  Transmission Date: 20190417
  Serious: No
  Sender: FDA-Public Use
  Company Number: US-PFIZER INC-2018419078

PATIENT
  Age: 49 Year
  Sex: Female
  Weight: 99.32 kg

DRUGS (1)
  1. XELJANZ XR [Suspect]
     Active Substance: TOFACITINIB CITRATE
     Indication: RHEUMATOID ARTHRITIS
     Dosage: 11 MG, DAILY
     Route: 048
     Dates: start: 201809, end: 2018

REACTIONS (3)
  - Musculoskeletal pain [Unknown]
  - Urinary tract infection [Unknown]
  - Herpes virus infection [Unknown]

NARRATIVE: CASE EVENT DATE: 2018
